FAERS Safety Report 9820505 (Version 1)
Quarter: 2014Q1

REPORT INFORMATION
  Report Type: Spontaneous
  Country: FR (occurrence: FR)
  Receive Date: 20140116
  Receipt Date: 20140116
  Transmission Date: 20141002
  Serious: Yes (Hospitalization)
  Sender: FDA-Public Use
  Company Number: PHHY2014FR002535

PATIENT
  Sex: 0

DRUGS (4)
  1. SIGNIFOR [Suspect]
     Indication: HYPOGLYCAEMIA
     Dosage: 600 UG, BID
     Route: 058
     Dates: start: 20131101
  2. SIGNIFOR [Suspect]
     Indication: OFF LABEL USE
  3. SOMATULINE//LANREOTIDE [Concomitant]
  4. PROGLYCEM [Concomitant]

REACTIONS (4)
  - Muscular weakness [Recovered/Resolved]
  - Abdominal distension [Recovered/Resolved]
  - Nausea [Recovered/Resolved]
  - Injection site erythema [Recovered/Resolved]
